FAERS Safety Report 8570591-8 (Version None)
Quarter: 2012Q3

REPORT INFORMATION
  Report Type: 
  Country: None (occurrence: None)
  Receive Date: 20120804
  Receipt Date: 20120725
  Transmission Date: 20120928
  Serious: Yes (Other)
  Sender: FDA-Public Use
  Company Number: US-ACCORD-014220

PATIENT
  Age: 37 Year
  Sex: Female

DRUGS (1)
  1. MYCOPHENOLATE MOFETIL [Suspect]
     Indication: SCLERITIS
     Dosage: MAXIMUM DOSE GIVEN WAS 3 G/DAY.

REACTIONS (4)
  - OFF LABEL USE [None]
  - LEUKOPENIA [None]
  - MALAISE [None]
  - OROPHARYNGEAL PAIN [None]
